FAERS Safety Report 9477402 (Version 2)
Quarter: 2013Q4

REPORT INFORMATION
  Report Type: Report from Study
  Country: GB (occurrence: GB)
  Receive Date: 20130826
  Receipt Date: 20131118
  Transmission Date: 20140711
  Serious: Yes (Other)
  Sender: FDA-Public Use
  Company Number: GB-ROCHE-1262341

PATIENT
  Age: 63 Year
  Sex: Female
  Weight: 56.6 kg

DRUGS (12)
  1. TRASTUZUMAB EMTANSINE [Suspect]
     Indication: BREAST CANCER
     Dosage: DATE OF LAST DOSE PRIOR TO SAE: 10/JUL/2013, LAST DOSE: 205 MG
     Route: 042
     Dates: start: 20110727
  2. OMEPRAZOLE [Concomitant]
     Indication: COLITIS
     Route: 065
     Dates: start: 20110805
  3. ZOMETA [Concomitant]
     Route: 065
     Dates: start: 20111109
  4. HYDROCORTISONE [Concomitant]
     Route: 065
     Dates: start: 20121211
  5. DAKTARIN [Concomitant]
     Indication: TINEA INFECTION
     Route: 065
     Dates: start: 20130325
  6. FLUCONAZOLE [Concomitant]
     Route: 065
     Dates: start: 20130509
  7. ELOCON CREAM [Concomitant]
     Indication: RASH
     Route: 065
     Dates: start: 20130719
  8. PREDSOL EYE DROPS [Concomitant]
     Indication: VISION BLURRED
     Route: 065
     Dates: start: 20130507
  9. LOTRIDERM CREAM [Concomitant]
     Indication: RASH
     Route: 065
     Dates: start: 201302
  10. DEXAMETHASONE [Concomitant]
     Route: 065
     Dates: start: 20130808
  11. PERTUZUMAB [Suspect]
     Indication: BREAST CANCER
     Dosage: LOADING DOSE
     Route: 042
     Dates: start: 20110727
  12. PERTUZUMAB [Suspect]
     Dosage: MAINTENANCE DOSE, LAST DOSE 420 MG
     Route: 042
     Dates: end: 20130710

REACTIONS (1)
  - Systemic lupus erythematosus [Not Recovered/Not Resolved]
